FAERS Safety Report 22016795 (Version 2)
Quarter: 2023Q2

REPORT INFORMATION
  Report Type: Spontaneous
  Country: US (occurrence: US)
  Receive Date: 20230221
  Receipt Date: 20230526
  Transmission Date: 20230721
  Serious: No
  Sender: FDA-Public Use
  Company Number: US-PFIZER INC-202300070483

PATIENT
  Age: 65 Year
  Sex: Female
  Weight: 68.03 kg

DRUGS (7)
  1. METHYLPREDNISOLONE [Suspect]
     Active Substance: METHYLPREDNISOLONE
     Indication: Swelling
     Dosage: UNK (21 TABLETS 6 THE FIRST DAY, THEN 5, 4, 3 ,2, 1)
     Dates: start: 20230213
  2. METHYLPREDNISOLONE [Suspect]
     Active Substance: METHYLPREDNISOLONE
     Indication: Pain
  3. PREDNISONE [Suspect]
     Active Substance: PREDNISONE
     Indication: Swelling
     Dosage: UNK, 9 DAY DOSE (3-3-3, 2-2-2, THEN 1-1-1)
  4. PREDNISONE [Suspect]
     Active Substance: PREDNISONE
     Indication: Pain
  5. METHOTREXATE SODIUM [Concomitant]
     Active Substance: METHOTREXATE SODIUM
     Indication: Swelling
     Dosage: 10 MG, WEEKLY, (2.5 MG ONCE A WEEK 4 TABLETS BY MOUTH EVERY 7 DAYS FOR THE NEXT 4 WEEKS)
     Route: 048
     Dates: start: 20230213
  6. METHOTREXATE SODIUM [Concomitant]
     Active Substance: METHOTREXATE SODIUM
     Indication: Pain
  7. FOLIC ACID [Concomitant]
     Active Substance: FOLIC ACID
     Dosage: UNK
     Dates: start: 20230213

REACTIONS (1)
  - No adverse event [Unknown]
